FAERS Safety Report 6272437-X (Version None)
Quarter: 2009Q3

REPORT INFORMATION
  Report Type: 
  Country: None (occurrence: None)
  Receive Date: 20090715
  Receipt Date: 20090703
  Transmission Date: 20100115
  Serious: Yes (Other)
  Sender: FDA-Public Use
  Company Number: 237438K09USA

PATIENT
  Age: 43 Year
  Sex: Female

DRUGS (2)
  1. REBIF [Suspect]
     Indication: MULTIPLE SCLEROSIS
     Dosage: 44 MCG, 3 IN 1 WEEKS, SUBCUTANEOUS
     Route: 058
     Dates: start: 20030120
  2. STEROIDS (CORTICOSTEROIDS) [Concomitant]

REACTIONS (4)
  - ABDOMINAL PAIN UPPER [None]
  - FATIGUE [None]
  - OSTEOPOROSIS [None]
  - PITUITARY TUMOUR BENIGN [None]
